FAERS Safety Report 21799829 (Version 2)
Quarter: 2023Q1

REPORT INFORMATION
  Report Type: Spontaneous
  Country: CN (occurrence: CN)
  Receive Date: 20221230
  Receipt Date: 20230111
  Transmission Date: 20230418
  Serious: Yes (Other)
  Sender: FDA-Public Use
  Company Number: CN-002147023-NVSC2022CN299311

PATIENT
  Age: 68 Year
  Sex: Male
  Weight: 56 kg

DRUGS (1)
  1. SACUBITRIL\VALSARTAN [Suspect]
     Active Substance: SACUBITRIL\VALSARTAN
     Indication: Cardiac failure chronic
     Dosage: 50 MG, BID
     Route: 048
     Dates: start: 20221213, end: 20221213

REACTIONS (4)
  - Laryngeal oedema [Recovering/Resolving]
  - Respiratory disorder [Recovering/Resolving]
  - Hypertension [Recovering/Resolving]
  - Concomitant disease aggravated [Unknown]

NARRATIVE: CASE EVENT DATE: 20221213
